FAERS Safety Report 7734128-5 (Version None)
Quarter: 2011Q3

REPORT INFORMATION
  Report Type: 
  Country: None (occurrence: None)
  Receive Date: 20110907
  Receipt Date: 20110826
  Transmission Date: 20111222
  Serious: Yes (Hospitalization)
  Sender: FDA-Public Use
  Company Number: US-ROCHE-800265

PATIENT
  Sex: Male

DRUGS (12)
  1. FLUOROURACIL [Concomitant]
  2. COMPAZINE [Concomitant]
  3. CAMPTOSAR [Concomitant]
  4. ZOCOR [Concomitant]
  5. XELODA [Suspect]
     Route: 065
  6. NEULASTA [Interacting]
     Indication: NEUTROPENIA
     Dosage: DAILY DOSE: UNKNOWN
     Route: 065
     Dates: start: 20110201
  7. ATENOLOL [Concomitant]
  8. OMEPRAZOLE [Concomitant]
  9. TYLENOL-500 [Concomitant]
  10. FERROUS SULFATE TAB [Concomitant]
  11. LEUCOVORIN CALCIUM [Concomitant]
  12. NITROGLYCERIN [Concomitant]

REACTIONS (4)
  - PYREXIA [None]
  - PNEUMONIA [None]
  - NEUTROPENIA [None]
  - DRUG INTERACTION [None]
